FAERS Safety Report 25986476 (Version 1)
Quarter: 2025Q4

REPORT INFORMATION
  Report Type: Spontaneous
  Country: US (occurrence: US)
  Receive Date: 20251102
  Receipt Date: 20251102
  Transmission Date: 20260118
  Serious: Yes (Other)
  Sender: SANOFI AVENTIS
  Company Number: US-SA-2025SA319748

PATIENT
  Age: 60 Year
  Sex: Female
  Weight: 96.82 kg

DRUGS (26)
  1. DUPIXENT [Suspect]
     Active Substance: DUPILUMAB
     Indication: Asthma
     Dosage: 300MG,QOW
     Route: 058
  2. GLUCAGON [Concomitant]
     Active Substance: GLUCAGON
  3. BENLYSTA [Concomitant]
     Active Substance: BELIMUMAB
  4. AJOVY [Concomitant]
     Active Substance: FREMANEZUMAB-VFRM
  5. NEURONTIN [Concomitant]
     Active Substance: GABAPENTIN
  6. MAGNESIUM [Concomitant]
     Active Substance: MAGNESIUM
  7. FLUTICASONE [Concomitant]
     Active Substance: FLUTICASONE
  8. TRIAMCINOLONE [Concomitant]
     Active Substance: TRIAMCINOLONE
  9. FISH OIL [Concomitant]
     Active Substance: FISH OIL
  10. CALCIUM\CHOLECALCIFEROL [Concomitant]
     Active Substance: CALCIUM\CHOLECALCIFEROL
  11. CLOBETASOL [Concomitant]
     Active Substance: CLOBETASOL
  12. ALLEGRA [Concomitant]
     Active Substance: FEXOFENADINE HYDROCHLORIDE
  13. DESONIDE [Concomitant]
     Active Substance: DESONIDE
  14. EPIPEN [Concomitant]
     Active Substance: EPINEPHRINE
  15. TRELEGY ELLIPTA [Concomitant]
     Active Substance: FLUTICASONE FUROATE\UMECLIDINIUM BROMIDE\VILANTEROL TRIFENATATE
  16. XOPENEX [Concomitant]
     Active Substance: LEVALBUTEROL HYDROCHLORIDE
  17. CORTEF [Concomitant]
     Active Substance: HYDROCORTISONE
  18. POTASSIUM CHLORIDE [Concomitant]
     Active Substance: POTASSIUM CHLORIDE
  19. CYMBALTA [Concomitant]
     Active Substance: DULOXETINE HYDROCHLORIDE
  20. VITAMIN D3 [Concomitant]
     Active Substance: CHOLECALCIFEROL
  21. VITAMIN D [Concomitant]
     Active Substance: VITAMIN D NOS
  22. AMLODIPINE BESYLATE [Concomitant]
     Active Substance: AMLODIPINE BESYLATE
  23. MICARDIS [Concomitant]
     Active Substance: TELMISARTAN
  24. PLAQUENIL [Concomitant]
     Active Substance: HYDROXYCHLOROQUINE SULFATE
  25. CELLCEPT [Concomitant]
     Active Substance: MYCOPHENOLATE MOFETIL
  26. H.P. ACTHAR [Concomitant]
     Active Substance: CORTICOTROPIN

REACTIONS (2)
  - Systemic lupus erythematosus [Unknown]
  - Dermatitis atopic [Unknown]
